FAERS Safety Report 7466049-X (Version None)
Quarter: 2011Q2

REPORT INFORMATION
  Report Type: 
  Country: None (occurrence: None)
  Receive Date: 20110509
  Receipt Date: 20100608
  Transmission Date: 20111010
  Serious: No
  Sender: FDA-Public Use
  Company Number: US-ALEXION-A201000659

PATIENT
  Sex: Male

DRUGS (13)
  1. CALCITRIOL [Concomitant]
     Indication: RENAL DISORDER
     Dosage: UNK
  2. ASPIRIN [Concomitant]
     Indication: ANTICOAGULANT THERAPY
     Dosage: 81 MG, UNK
  3. POTASSIUM [Concomitant]
     Indication: BLOOD POTASSIUM DECREASED
     Dosage: 20 MEQ, UNK
  4. SENNA                              /00142201/ [Concomitant]
     Dosage: UNK
  5. SIMVASTATIN [Concomitant]
     Indication: BLOOD CHOLESTEROL INCREASED
     Dosage: 20 MG, UNK
  6. LORAZEPAM [Concomitant]
     Indication: RELAXATION THERAPY
     Dosage: UNK
  7. VITAMIN B12                        /00056201/ [Concomitant]
     Indication: PERNICIOUS ANAEMIA
     Dosage: UNK
  8. LASIX [Concomitant]
     Indication: FLUID RETENTION
     Dosage: 40 MG, UNK
  9. METOPROLOL TARTRATE [Concomitant]
     Indication: CARDIAC DISORDER
     Dosage: 25 MG, Q2W
  10. NITROGLYCERIN [Concomitant]
     Dosage: 0.1 MG, UNK
     Route: 062
  11. DESFERAL                           /00062903/ [Concomitant]
     Dosage: UNK
  12. SOLIRIS [Suspect]
     Indication: PAROXYSMAL NOCTURNAL HAEMOGLOBINURIA
     Dosage: UNK
     Route: 042
     Dates: start: 20100606
  13. ASPIRIN [Concomitant]
     Indication: CARDIAC DISORDER

REACTIONS (6)
  - MYALGIA [None]
  - FATIGUE [None]
  - PYREXIA [None]
  - GAIT DISTURBANCE [None]
  - CHILLS [None]
  - RETCHING [None]
